FAERS Safety Report 21243590 (Version 1)
Quarter: 2022Q3

REPORT INFORMATION
  Report Type: Spontaneous
  Country: GT (occurrence: GT)
  Receive Date: 20220823
  Receipt Date: 20220823
  Transmission Date: 20221027
  Serious: Yes (Death)
  Sender: FDA-Public Use
  Company Number: GT-NOVARTISPH-NVSC2022GT187746

PATIENT
  Sex: Male

DRUGS (1)
  1. GLIVEC [Suspect]
     Active Substance: IMATINIB MESYLATE
     Indication: Acute lymphocytic leukaemia
     Dosage: 600 MG (1X 400 MG+2X100MG TABLETS)
     Route: 065

REACTIONS (2)
  - Pulmonary oedema [Fatal]
  - Pericardial effusion [Fatal]
